FAERS Safety Report 4942907-2 (Version None)
Quarter: 2006Q1

REPORT INFORMATION
  Report Type: 
  Country: None (occurrence: None)
  Receive Date: 20060314
  Receipt Date: 20060306
  Transmission Date: 20060701
  Serious: Yes (Hospitalization)
  Sender: FDA-Public Use
  Company Number: IN-AVENTIS-200612130GDDC

PATIENT
  Age: 63 Year
  Sex: Female
  Weight: 62 kg

DRUGS (24)
  1. DOCETAXEL [Suspect]
     Indication: BREAST CANCER METASTATIC
     Route: 042
     Dates: start: 20051216, end: 20060127
  2. INVESTIGATIONAL DRUG [Suspect]
     Indication: BREAST CANCER METASTATIC
     Route: 048
     Dates: start: 20051216
  3. DILTIAZEM [Concomitant]
     Dates: start: 20030101
  4. METFORMIN [Concomitant]
     Dates: start: 20040430
  5. RANITIDINE [Concomitant]
     Route: 048
     Dates: start: 20051216
  6. GRANISETRON [Concomitant]
     Route: 042
     Dates: start: 20060127, end: 20060128
  7. FUROSEMIDE [Concomitant]
     Route: 042
     Dates: start: 20060127, end: 20060128
  8. DOMPERIDONE [Concomitant]
     Route: 048
     Dates: start: 20060128, end: 20060201
  9. GRANULOCYTE COLONY STIMULATING FACTOR [Concomitant]
     Route: 058
     Dates: start: 20060128, end: 20060201
  10. PLANTAGO OVATA DAV [Concomitant]
     Route: 048
     Dates: start: 20060127, end: 20060203
  11. DUPHALAC [Concomitant]
     Route: 048
     Dates: start: 20060127, end: 20060203
  12. TERBINAFINE HCL [Concomitant]
     Route: 048
     Dates: start: 20060202, end: 20060211
  13. CEFTAZIDIME [Concomitant]
     Route: 042
     Dates: start: 20060202, end: 20060207
  14. AMIKACIN [Concomitant]
     Route: 042
     Dates: start: 20060202, end: 20060207
  15. ACETAMINOPHEN [Concomitant]
     Route: 048
     Dates: start: 20060202, end: 20060202
  16. PANTOPRAZOLE [Concomitant]
     Route: 048
     Dates: start: 20060203, end: 20060205
  17. VITAMIN B COMPLEX CAP [Concomitant]
     Route: 048
     Dates: start: 20060221
  18. COTRIM [Concomitant]
     Route: 048
     Dates: start: 20060205
  19. MICONAZOLE [Concomitant]
     Route: 061
     Dates: start: 20060202, end: 20060205
  20. ALL OTHER THERAPEUTIC PRODUCTS [Concomitant]
     Route: 061
     Dates: start: 20060206, end: 20060208
  21. ALL OTHER THERAPEUTIC PRODUCTS [Concomitant]
     Route: 061
     Dates: start: 20060210
  22. MUPIROCIN [Concomitant]
     Route: 061
     Dates: start: 20060208, end: 20060210
  23. POTASSIUM [Concomitant]
     Route: 042
     Dates: start: 20060208, end: 20060209
  24. FRESH FROZEN PLASMA [Concomitant]
     Route: 042
     Dates: start: 20060210, end: 20060210

REACTIONS (2)
  - HYPONATRAEMIA [None]
  - SOMNOLENCE [None]
